FAERS Safety Report 9058475 (Version 1)
Quarter: 2013Q1

REPORT INFORMATION
  Report Type: Spontaneous
  Country: GB (occurrence: None)
  Receive Date: 20130117
  Receipt Date: 20130117
  Transmission Date: 20140127
  Serious: Yes (Hospitalization)
  Sender: FDA-Public Use
  Company Number: 2013SUN00012

PATIENT
  Age: 51 Year
  Sex: Female
  Weight: 69 kg

DRUGS (10)
  1. CARBOPLATIN [Suspect]
     Indication: BREAST CANCER
     Dosage: 760 MG, THRICE PER WEEK, INTRAVENOUS
  2. DOCETAXEL (DOCETAXEL) [Suspect]
     Indication: BREAST CANCER
     Dosage: 135 MG, THRICE PER WEEK, INTRAVENOUS
     Dates: start: 20121107
  3. TRASTUZUMAB [Suspect]
     Indication: BREAST CANCER
     Dosage: 550 MG, ONCE PER 3 WEEKS, INTRAVENOUS
     Dates: start: 20121107
  4. OXYCODONE HYDROCHLORIDE [Concomitant]
  5. PARACETAMOL (PARACETAMOL) [Concomitant]
  6. PICOPREP (CITRIC ACID, MAGNESIUM OXIDE, SODIU PICOSULFATE) [Concomitant]
  7. TEMAZEPAM (TEMAZEPAM) [Concomitant]
  8. UNKNOWN DRUG (UNKNOWN DRUG) [Concomitant]
  9. VENLAFAXINE HYDROCHLORIDE (VENLAFAXINE) [Concomitant]
  10. ZOFRAN (ONDANSETRON, ONDANSETRON HYDROCHLORIDE, ONDANSETRON HYDROCHLORIDE DIHYDRATE) [Concomitant]

REACTIONS (1)
  - Neutropenic colitis [None]
